FAERS Safety Report 7706603-0 (Version None)
Quarter: 2011Q3

REPORT INFORMATION
  Report Type: 
  Country: None (occurrence: None)
  Receive Date: 20110824
  Receipt Date: 20110817
  Transmission Date: 20111222
  Serious: Yes (Hospitalization, Disabling)
  Sender: FDA-Public Use
  Company Number: US-BAYER-201019111NA

PATIENT
  Age: 39 Year
  Sex: Female
  Weight: 68 kg

DRUGS (8)
  1. PROZAC [Concomitant]
     Dosage: 20 MG (DAILY DOSE), QD, ORAL
     Route: 048
     Dates: start: 20091111
  2. PROZAC [Concomitant]
     Indication: DEPRESSION
     Dosage: 10 MG (DAILY DOSE), QD,
     Dates: end: 20091111
  3. PROZAC [Concomitant]
     Dosage: 20 MG (DAILY DOSE), QD, ORAL
     Route: 048
     Dates: start: 20091111
  4. YAZ [Suspect]
     Indication: ACNE
  5. YAZ [Suspect]
     Indication: PREMENSTRUAL SYNDROME
     Route: 048
     Dates: start: 20090807, end: 20091103
  6. MIRALAX [Concomitant]
     Indication: CONSTIPATION
     Dosage: 1 PACKET P.O. DAILY IF NEEDED FOR CONSTIPATION
     Route: 048
     Dates: start: 20091111
  7. NEXIUM [Concomitant]
     Indication: PROPHYLAXIS
  8. VALTREX [Concomitant]
     Indication: GENITAL HERPES
     Dates: start: 19990101

REACTIONS (4)
  - ISCHAEMIC STROKE [None]
  - MOBILITY DECREASED [None]
  - HEMIPARESIS [None]
  - CEREBRAL INFARCTION [None]
